FAERS Safety Report 18115904 (Version 13)
Quarter: 2021Q3

REPORT INFORMATION
  Report Type: Report from Study
  Country: US (occurrence: US)
  Receive Date: 20200806
  Receipt Date: 20210713
  Transmission Date: 20211014
  Serious: Yes (Other)
  Sender: FDA-Public Use
  Company Number: US-SHIRE-US202025354

PATIENT
  Sex: Female
  Weight: 88.44 kg

DRUGS (31)
  1. TESTOSTERONE. [Concomitant]
     Active Substance: TESTOSTERONE
     Dosage: UNK
     Route: 065
  2. LORAZEPAM. [Concomitant]
     Active Substance: LORAZEPAM
     Dosage: UNK
     Route: 065
  3. NALTREXONE [Concomitant]
     Active Substance: NALTREXONE
     Dosage: UNK
     Route: 065
  4. CUVITRU [Suspect]
     Active Substance: HUMAN IMMUNOGLOBULIN G
     Dosage: 13 GRAM, EVERY WEEK
     Route: 058
     Dates: start: 20190518
  5. ACETAMINOPHEN. [Concomitant]
     Active Substance: ACETAMINOPHEN
     Dosage: UNK
     Route: 065
  6. THYROLAR [LEVOTHYROXINE SODIUM] [Concomitant]
     Dosage: UNK
     Route: 065
  7. TRAZODONE [Concomitant]
     Active Substance: TRAZODONE HYDROCHLORIDE
     Dosage: UNK
     Route: 065
  8. CLINDAMYCIN. [Concomitant]
     Active Substance: CLINDAMYCIN
     Indication: IMPAIRED HEALING
     Dosage: 300 MILLIGRAM, 2X/DAY:BID
     Route: 065
  9. DIPHENHYDRAMINE. [Concomitant]
     Active Substance: DIPHENHYDRAMINE
     Dosage: UNK
     Route: 065
  10. NITROFURANTOIN. [Concomitant]
     Active Substance: NITROFURANTOIN
     Dosage: UNK
     Route: 065
  11. CIPRO [Concomitant]
     Active Substance: CIPROFLOXACIN HYDROCHLORIDE
     Indication: BACTERIAL VAGINOSIS
     Dosage: UNK
     Route: 065
  12. FLONASE [Concomitant]
     Active Substance: FLUTICASONE PROPIONATE
  13. FLUCONAZOLE. [Concomitant]
     Active Substance: FLUCONAZOLE
     Indication: ADVERSE EVENT
     Dosage: UNK
     Route: 065
  14. ELMIRON [Concomitant]
     Active Substance: PENTOSAN POLYSULFATE SODIUM
     Dosage: UNK
     Route: 065
  15. NORDITROPIN [Concomitant]
     Active Substance: SOMATROPIN
     Dosage: UNK
     Route: 065
  16. EPINEPHRINE. [Concomitant]
     Active Substance: EPINEPHRINE
     Dosage: UNK
     Route: 065
  17. PROGESTERONE. [Concomitant]
     Active Substance: PROGESTERONE
     Dosage: UNK
     Route: 065
  18. AUGMENTIN BAMBINI [Concomitant]
     Active Substance: AMOXICILLIN\CLAVULANIC ACID
  19. CUVITRU [Suspect]
     Active Substance: HUMAN IMMUNOGLOBULIN G
     Dosage: 13 GRAM, EVERY WEEK
     Route: 058
     Dates: start: 20181015
  20. COVID?19 VACCINE NOS. [Suspect]
     Active Substance: COVID-19 VACCINE NOS
     Indication: COVID-19 IMMUNISATION
     Dosage: UNK
     Route: 065
     Dates: start: 20210510
  21. THYROID [Concomitant]
     Active Substance: LEVOTHYROXINE\LIOTHYRONINE
     Dosage: UNK
     Route: 065
  22. SUMATRIPTAN SUCCINATE. [Concomitant]
     Active Substance: SUMATRIPTAN SUCCINATE
     Dosage: UNK
     Route: 065
  23. FLAGYL [Concomitant]
     Active Substance: METRONIDAZOLE\METRONIDAZOLE HYDROCHLORIDE
     Dosage: UNK
     Route: 065
  24. TERCONAZOLE. [Concomitant]
     Active Substance: TERCONAZOLE
     Dosage: UNK
     Route: 065
  25. LMX4 [Concomitant]
     Active Substance: LIDOCAINE
     Dosage: UNK
     Route: 065
  26. PROBIOTIC [BIFIDOBACTERIUM BIFIDUM;BIFIDOBACTERIUM LACTIS;BIFIDOBACTER [Concomitant]
     Dosage: UNK
     Route: 065
  27. LUNESTA [Concomitant]
     Active Substance: ESZOPICLONE
     Dosage: UNK
     Route: 065
  28. CLARITIN [Concomitant]
     Active Substance: LORATADINE
     Dosage: UNK
     Route: 065
  29. LEVOFLOXACIN. [Concomitant]
     Active Substance: LEVOFLOXACIN
  30. CUVITRU [Suspect]
     Active Substance: HUMAN IMMUNOGLOBULIN G
     Indication: IMMUNODEFICIENCY COMMON VARIABLE
     Dosage: 11 GRAM, 1/WEEK
     Route: 058
     Dates: start: 20181015
  31. ESTROGEN [Concomitant]
     Active Substance: ESTROGENS
     Dosage: UNK
     Route: 065

REACTIONS (16)
  - Abdominal infection [Unknown]
  - Urinary tract infection [Unknown]
  - Pain [Unknown]
  - Pyrexia [Unknown]
  - Post procedural erythema [Unknown]
  - Tooth infection [Unknown]
  - Sinusitis [Unknown]
  - COVID-19 [Unknown]
  - Headache [Unknown]
  - Tooth abscess [Unknown]
  - Impaired healing [Unknown]
  - Bacterial vaginosis [Unknown]
  - Fatigue [Unknown]
  - Infection [Unknown]
  - Pneumonia [Unknown]
  - Bacterial infection [Unknown]
